FAERS Safety Report 18156851 (Version 5)
Quarter: 2022Q3

REPORT INFORMATION
  Report Type: Other
  Country: AR (occurrence: AR)
  Receive Date: 20200817
  Receipt Date: 20220713
  Transmission Date: 20221027
  Serious: Yes (Hospitalization, Other)
  Sender: FDA-Public Use
  Company Number: AR-002147023-PHHY2016AR048139

PATIENT
  Age: 68 Year
  Sex: Female

DRUGS (6)
  1. XOLAIR [Suspect]
     Active Substance: OMALIZUMAB
     Indication: Asthma
     Dosage: 1 DOSAGE FORM, QMO
     Route: 065
     Dates: start: 2013
  2. XOLAIR [Suspect]
     Active Substance: OMALIZUMAB
     Dosage: 150 MG, QMO (ONCE MONTHLY)
     Route: 058
     Dates: start: 20130322
  3. XOLAIR [Suspect]
     Active Substance: OMALIZUMAB
     Dosage: ON 12-JUN
     Route: 065
  4. BUDESONIDE\FORMOTEROL [Concomitant]
     Active Substance: BUDESONIDE\FORMOTEROL
     Indication: Product used for unknown indication
     Route: 065
  5. METFORMIN [Concomitant]
     Active Substance: METFORMIN HYDROCHLORIDE
  6. PRISONIL [Concomitant]

REACTIONS (19)
  - Benign pancreatic neoplasm [Recovered/Resolved]
  - Post procedural complication [Recovering/Resolving]
  - Syncope [Recovering/Resolving]
  - Blood glucose decreased [Unknown]
  - Dyspnoea [Unknown]
  - Lower respiratory tract congestion [Unknown]
  - Insulinoma [Unknown]
  - Fall [Unknown]
  - Lung disorder [Recovering/Resolving]
  - Malaise [Unknown]
  - Hypertension [Unknown]
  - Cardiomegaly [Unknown]
  - Agitation [Unknown]
  - Inner ear disorder [Unknown]
  - Gait disturbance [Unknown]
  - Dizziness [Unknown]
  - Fatigue [Unknown]
  - Product supply issue [Unknown]
  - Bronchiectasis [Unknown]

NARRATIVE: CASE EVENT DATE: 20160101
